FAERS Safety Report 10065081 (Version 1)
Quarter: 2014Q1

REPORT INFORMATION
  Report Type: Spontaneous
  Country: US (occurrence: None)
  Receive Date: 20140328
  Receipt Date: 20140328
  Transmission Date: 20141002
  Serious: No
  Sender: FDA-Public Use
  Company Number: CABO-13003805

PATIENT
  Age: 85 Year
  Sex: Male

DRUGS (9)
  1. COMETRIQ [Suspect]
     Indication: MALIGNANT MELANOMA
  2. EXFORGE (AMLODIPINE BESILATE, VALSARTAN) [Concomitant]
  3. POTASSIUM CHLORIDE (POTASSIUM CHLORIDE) [Concomitant]
  4. CARVEDILOL (CARVEDILOL) [Concomitant]
  5. FINASTERIDE [Concomitant]
  6. LIPITOR (ATORVASTATIN CALCIUM) [Concomitant]
  7. ASPIRIN (ACETYLSALICYLIC ACID) [Concomitant]
  8. VITAMIN D (COLECALCIFEROL) [Concomitant]
  9. MULTIVITAMIN (VITAMIN NOS) [Concomitant]

REACTIONS (4)
  - Chills [None]
  - Fatigue [None]
  - Diarrhoea [None]
  - Off label use [None]
